FAERS Safety Report 6269389-5 (Version None)
Quarter: 2009Q3

REPORT INFORMATION
  Report Type: 
  Country: None (occurrence: None)
  Receive Date: 20090715
  Receipt Date: 20090703
  Transmission Date: 20100115
  Serious: Yes (Other)
  Sender: FDA-Public Use
  Company Number: BR-MYLANLABS-2009S1012013

PATIENT
  Age: 25 Year
  Sex: Male

DRUGS (2)
  1. VENLAFAXINE HYDROCHLORIDE [Suspect]
  2. HALOPERIDOL [Suspect]

REACTIONS (2)
  - DRUG INTERACTION [None]
  - SEROTONIN SYNDROME [None]
